FAERS Safety Report 5592801-1 (Version None)
Quarter: 2008Q1

REPORT INFORMATION
  Report Type: 
  Country: None (occurrence: None)
  Receive Date: 20080114
  Receipt Date: 20080104
  Transmission Date: 20080703
  Serious: Yes (Other)
  Sender: FDA-Public Use
  Company Number: 2008000578

PATIENT
  Age: 67 Year
  Sex: Male
  Weight: 68.0396 kg

DRUGS (2)
  1. LUDENS THROAT DROPS WILD CHERRY (PECTIN) [Suspect]
     Dosage: ONCE, ORAL
     Route: 048
     Dates: start: 20080104, end: 20080104
  2. INSULIN (INSULIN) [Concomitant]

REACTIONS (1)
  - BLOOD GLUCOSE INCREASED [None]
